FAERS Safety Report 9436794 (Version 1)
Quarter: 2013Q3

REPORT INFORMATION
  Report Type: Report from Study
  Country: CA (occurrence: CA)
  Receive Date: 20130802
  Receipt Date: 20130802
  Transmission Date: 20140515
  Serious: Yes (Other)
  Sender: FDA-Public Use
  Company Number: CA-JNJFOC-20130718396

PATIENT
  Age: 55 Year
  Sex: Male
  Weight: 82 kg

DRUGS (7)
  1. REMICADE [Suspect]
     Indication: CROHN^S DISEASE
     Route: 042
     Dates: start: 20111125
  2. SINGULAIR [Concomitant]
     Route: 065
  3. RAMIPRIL [Concomitant]
     Route: 065
  4. CRESTOR [Concomitant]
     Route: 065
  5. INSULIN [Concomitant]
     Route: 065
  6. TERBINAFINE [Concomitant]
     Route: 065
  7. AZATHIOPRINE [Concomitant]
     Route: 065

REACTIONS (2)
  - Cellulitis [Recovered/Resolved]
  - Arthropod bite [Recovered/Resolved]
